FAERS Safety Report 15848293 (Version 1)
Quarter: 2019Q1

REPORT INFORMATION
  Report Type: Spontaneous
  Country: US (occurrence: US)
  Receive Date: 20190121
  Receipt Date: 20190121
  Transmission Date: 20190417
  Serious: No
  Sender: FDA-Public Use
  Company Number: US-PFIZER INC-2019025227

PATIENT
  Age: 65 Year
  Sex: Male

DRUGS (3)
  1. HYDROCORTISONE. [Suspect]
     Active Substance: HYDROCORTISONE
     Dosage: UNK
     Dates: end: 201601
  2. SOMAVERT [Suspect]
     Active Substance: PEGVISOMANT
     Dosage: 45 MG, WEEKLY [DECREASED TO 3 15 MG INJECTIONS PER WEEK]
  3. DEPO-TESTOSTERONE [Suspect]
     Active Substance: TESTOSTERONE CYPIONATE
     Dosage: UNK

REACTIONS (10)
  - Hyperhidrosis [Unknown]
  - Alanine aminotransferase increased [Unknown]
  - Lymphocyte count increased [Unknown]
  - Aspartate aminotransferase increased [Unknown]
  - Blood testosterone decreased [Unknown]
  - Blood testosterone free decreased [Unknown]
  - Epistaxis [Unknown]
  - Blood luteinising hormone decreased [Unknown]
  - Blood urea nitrogen/creatinine ratio increased [Unknown]
  - Blood urea increased [Unknown]
